FAERS Safety Report 8921493 (Version 1)
Quarter: 2012Q4

REPORT INFORMATION
  Report Type: 
  Country: GB (occurrence: GB)
  Receive Date: 20121121
  Receipt Date: 20121121
  Transmission Date: 20130627
  Serious: Yes (Other)
  Sender: FDA-Public Use
  Company Number: GB-TEVA-370806ISR

PATIENT
  Age: 45 Year
  Sex: Female
  Weight: 96.16 kg

DRUGS (3)
  1. TRAMADOL [Suspect]
     Indication: ANALGESIC THERAPY
     Route: 048
     Dates: start: 20120106, end: 20121017
  2. CITALOPRAM [Concomitant]
     Indication: DEPRESSION
     Route: 048
  3. DIAZEPAM [Concomitant]

REACTIONS (1)
  - Neutropenia [Recovering/Resolving]
